FAERS Safety Report 7047601-2 (Version None)
Quarter: 2010Q4

REPORT INFORMATION
  Report Type: 
  Country: None (occurrence: None)
  Receive Date: 20101015
  Receipt Date: 20101006
  Transmission Date: 20110411
  Serious: Yes (Death, Hospitalization)
  Sender: FDA-Public Use
  Company Number: JP-JNJFOC-20080300295

PATIENT
  Sex: Male
  Weight: 59 kg

DRUGS (15)
  1. REMICADE [Suspect]
     Indication: BEHCET'S SYNDROME
     Route: 042
  2. REMICADE [Suspect]
     Route: 042
  3. REMICADE [Suspect]
     Route: 042
  4. REMICADE [Suspect]
     Route: 042
  5. MEDROL [Suspect]
     Indication: BEHCET'S SYNDROME
  6. PLETAL [Concomitant]
     Indication: HYPERTENSION
     Route: 048
  7. AMLODIPINE BESYLATE [Concomitant]
     Indication: HYPERTENSION
     Route: 048
  8. PREDONINE [Concomitant]
     Indication: BEHCET'S SYNDROME
     Route: 048
  9. ATELEC [Concomitant]
     Indication: HYPERTENSION
     Route: 048
  10. NOVO RAPID MIX [Concomitant]
     Indication: DIABETES MELLITUS
  11. GLUCOBAY [Concomitant]
     Indication: DIABETES MELLITUS
     Route: 048
  12. OLMETEC [Concomitant]
     Indication: HYPERTENSION
     Route: 048
  13. FINIBAX [Concomitant]
     Indication: LUNG INFECTION PSEUDOMONAL
  14. ANTITUBERCLUOSIS DRUGS [Concomitant]
     Indication: TUBERCULOSIS
  15. NOVOLIN R [Concomitant]
     Indication: DIABETES MELLITUS

REACTIONS (4)
  - ATYPICAL MYCOBACTERIUM TEST POSITIVE [None]
  - LUNG INFECTION PSEUDOMONAL [None]
  - MULTI-ORGAN FAILURE [None]
  - TUBERCULOSIS [None]
